FAERS Safety Report 24459793 (Version 1)
Quarter: 2024Q4

REPORT INFORMATION
  Report Type: Spontaneous
  Country: FR (occurrence: FR)
  Receive Date: 20241018
  Receipt Date: 20241018
  Transmission Date: 20250114
  Serious: No
  Sender: ROCHE
  Company Number: FR-ROCHE-3567982

PATIENT
  Age: 26 Year
  Sex: Female
  Weight: 59.0 kg

DRUGS (2)
  1. RITUXIMAB [Suspect]
     Active Substance: RITUXIMAB
     Indication: Immune thrombocytopenia
     Route: 065
     Dates: start: 20230711, end: 20230711
  2. ELTROMBOPAG OLAMINE [Suspect]
     Active Substance: ELTROMBOPAG OLAMINE
     Indication: Immune thrombocytopenia
     Route: 065
     Dates: start: 20230708, end: 20230723

REACTIONS (1)
  - Maternal exposure during pregnancy [Unknown]
